FAERS Safety Report 6401312-2 (Version None)
Quarter: 2009Q4

REPORT INFORMATION
  Report Type: 
  Country: None (occurrence: None)
  Receive Date: 20091015
  Receipt Date: 20091009
  Transmission Date: 20100525
  Serious: Yes (Death, Hospitalization)
  Sender: FDA-Public Use
  Company Number: PHHO2009US11132

PATIENT
  Sex: Female
  Weight: 117 kg

DRUGS (7)
  1. BLINDED NO TREATMENT RECEIVED NOMED [Suspect]
     Indication: CARCINOID TUMOUR
     Dosage: DOUBLE BLIND
     Route: 048
  2. BLINDED PLACEBO COMP-PLA+ [Suspect]
     Indication: CARCINOID TUMOUR
     Dosage: DOUBLE BLIND
     Route: 048
  3. BLINDED RAD 666 RAD+TAB [Suspect]
     Indication: CARCINOID TUMOUR
     Dosage: DOUBLE BLIND
     Route: 048
  4. RAD001C [Suspect]
     Indication: CARCINOID TUMOUR
     Dosage: 20 MG PER DAY
     Dates: start: 20090812, end: 20090906
  5. SANDOSTATIN LAR [Concomitant]
     Indication: CARCINOID TUMOUR
     Dosage: DOUBLE BLIND
     Dates: start: 20090812
  6. METFORMIN HYDROCHLORIDE [Concomitant]
     Indication: DIABETES MELLITUS
     Dosage: UNK
     Route: 048
  7. SITAGLIPTIN [Concomitant]
     Indication: DIABETES MELLITUS
     Dosage: UNK
     Route: 048

REACTIONS (23)
  - ASTHENIA [None]
  - ATRIAL FIBRILLATION [None]
  - BLOOD CREATININE INCREASED [None]
  - BLOOD UREA INCREASED [None]
  - BREATH SOUNDS ABNORMAL [None]
  - COUGH [None]
  - DELIRIUM [None]
  - DIARRHOEA [None]
  - ENDOTRACHEAL INTUBATION [None]
  - HYPERGLYCAEMIA [None]
  - HYPOPHAGIA [None]
  - HYPOTENSION [None]
  - HYPOXIA [None]
  - LETHARGY [None]
  - MALIGNANT NEOPLASM PROGRESSION [None]
  - PNEUMONIA [None]
  - PULMONARY CONGESTION [None]
  - PYREXIA [None]
  - RHONCHI [None]
  - SEPSIS [None]
  - SEPTIC SHOCK [None]
  - TACHYCARDIA [None]
  - UNRESPONSIVE TO STIMULI [None]
